FAERS Safety Report 5635213-4 (Version None)
Quarter: 2008Q1

REPORT INFORMATION
  Report Type: 
  Country: None (occurrence: None)
  Receive Date: 20080222
  Receipt Date: 20080125
  Transmission Date: 20080703
  Serious: No
  Sender: FDA-Public Use
  Company Number: US-BOEHRINGER INGELHEIM GMBH, GERMANY-2008-BP-01274BP

PATIENT
  Sex: Male

DRUGS (7)
  1. SPIRIVA [Suspect]
     Indication: CHRONIC OBSTRUCTIVE PULMONARY DISEASE
     Route: 055
     Dates: start: 20080124, end: 20080124
  2. LANTUS [Concomitant]
     Indication: TYPE 1 DIABETES MELLITUS
     Route: 058
  3. NEXIUM [Concomitant]
     Indication: DYSPEPSIA
  4. TRICYCLINE [Concomitant]
     Indication: PROPHYLAXIS
  5. COZAAR [Concomitant]
     Indication: HYPERTENSION
     Route: 048
  6. LIPITOR [Concomitant]
     Indication: BLOOD CHOLESTEROL INCREASED
  7. DETROL LA [Concomitant]
     Indication: BLADDER DISORDER

REACTIONS (1)
  - BLOOD GLUCOSE INCREASED [None]
